FAERS Safety Report 5337393-7 (Version None)
Quarter: 2007Q2

REPORT INFORMATION
  Report Type: 
  Country: None (occurrence: None)
  Receive Date: 20070529
  Receipt Date: 20070518
  Transmission Date: 20071010
  Serious: Yes (Hospitalization, Other)
  Sender: FDA-Public Use
  Company Number: US-PFIZER INC-2007041093

PATIENT
  Sex: Male
  Weight: 81.818 kg

DRUGS (1)
  1. ATARAX [Suspect]
     Indication: PRURITUS

REACTIONS (11)
  - AMNESIA [None]
  - ANXIETY [None]
  - BIPOLAR DISORDER [None]
  - DEPRESSION [None]
  - FEAR [None]
  - ILL-DEFINED DISORDER [None]
  - PARANOIA [None]
  - REPETITIVE SPEECH [None]
  - SUICIDAL BEHAVIOUR [None]
  - THINKING ABNORMAL [None]
  - TREMOR [None]
